FAERS Safety Report 17822066 (Version 3)
Quarter: 2020Q2

REPORT INFORMATION
  Report Type: Spontaneous
  Country: GB (occurrence: GB)
  Receive Date: 20200526
  Receipt Date: 20200619
  Transmission Date: 20200714
  Serious: Yes (Other)
  Sender: FDA-Public Use
  Company Number: GB-CELLTRION INC.-2020GB022576

PATIENT

DRUGS (10)
  1. THIOTEPA. [Suspect]
     Active Substance: THIOTEPA
     Indication: PROPHYLAXIS AGAINST TRANSPLANT REJECTION
     Dosage: 10 MG/KG
     Route: 065
  2. FLUDARABINE [Suspect]
     Active Substance: FLUDARABINE PHOSPHATE
     Indication: PROPHYLAXIS AGAINST TRANSPLANT REJECTION
     Dosage: 150 MG/M2
     Route: 065
  3. FLUDARABINE [Suspect]
     Active Substance: FLUDARABINE PHOSPHATE
     Indication: ALLOGENIC STEM CELL TRANSPLANTATION
  4. RITUXIMAB (UNKNOWN) [Suspect]
     Active Substance: RITUXIMAB
     Indication: PROPHYLAXIS AGAINST TRANSPLANT REJECTION
     Dosage: 200 MG/M2
     Route: 065
  5. TREOSULFAN [Suspect]
     Active Substance: TREOSULFAN
     Indication: PROPHYLAXIS AGAINST TRANSPLANT REJECTION
     Dosage: 42 MG/M2
     Route: 065
  6. THIOTEPA. [Suspect]
     Active Substance: THIOTEPA
     Indication: ALLOGENIC STEM CELL TRANSPLANTATION
  7. ANTITHYMOCYTE IMMUNOGLOBULIN [Suspect]
     Active Substance: THYMOCYTE IMMUNE GLOBULIN NOS
     Indication: ALLOGENIC STEM CELL TRANSPLANTATION
     Dosage: 15 MG/KG
  8. RITUXIMAB (UNKNOWN) [Suspect]
     Active Substance: RITUXIMAB
     Indication: ALLOGENIC STEM CELL TRANSPLANTATION
  9. TREOSULFAN [Suspect]
     Active Substance: TREOSULFAN
     Indication: ALLOGENIC STEM CELL TRANSPLANTATION
     Dosage: 42000 MG/M2
     Route: 065
  10. ATG [ANTITHYMOCYTE IMMUNOGLOBULIN] [Suspect]
     Active Substance: LAPINE T-LYMPHOCYTE IMMUNE GLOBULIN
     Indication: PROPHYLAXIS AGAINST TRANSPLANT REJECTION
     Dosage: 15 MG/KG
     Route: 065

REACTIONS (5)
  - Adenovirus infection [Unknown]
  - Product use issue [Unknown]
  - Acute graft versus host disease in skin [Unknown]
  - Pericardial effusion [Unknown]
  - Off label use [Unknown]
